FAERS Safety Report 4731022-9 (Version None)
Quarter: 2005Q3

REPORT INFORMATION
  Report Type: 
  Country: None (occurrence: None)
  Receive Date: 20050726
  Receipt Date: 20040603
  Transmission Date: 20060218
  Serious: Yes (Other)
  Sender: FDA-Public Use
  Company Number: 04GER0162

PATIENT
  Age: 66 Year
  Sex: Male

DRUGS (27)
  1. AGGRASTAT [Suspect]
     Indication: MYOCARDIAL INFARCTION
     Dosage: 48 ML/H (NR), INTRAVENOUS
     Route: 042
     Dates: start: 20031231, end: 20031231
  2. N/A [Suspect]
     Dosage: 12 ML/H
     Dates: start: 20031231, end: 20040101
  3. ASPIRIN [Suspect]
     Indication: MYOCARDIAL INFARCTION
     Dates: start: 19990701, end: 20040111
  4. KHOC3/K CITRATE(POTASSIUM CITRATE) [Concomitant]
  5. ACETAMINOPHEN [Concomitant]
  6. ACETAMINOPHEN (+) CAFFEINE (+) PROPYPHEN(PARACETAMOL) [Concomitant]
  7. ACETYLCYSTEINE [Concomitant]
  8. ACETYLCYSTEINE [Concomitant]
  9. AMPICILLIN SODIUM AND SULBACTAM SODIUM [Concomitant]
  10. BISOPROLOL FUMARATE [Concomitant]
  11. BORNAPRINE HYDROCHLORIDE [Concomitant]
  12. CLOPIDOGREL BISULFATE [Concomitant]
  13. HEPARIN-FRACTION, SODIUM SALT [Concomitant]
  14. FUROSEMIDE [Concomitant]
  15. HEPARIN [Concomitant]
  16. HYDROCHLOROTHIAZIDE (+) RAMIPRIL [Concomitant]
  17. INSULIN, PIPHASEIC ISOPHANE(INJECTION) [Concomitant]
  18. INSULIN [Concomitant]
  19. NEBIVOLOL HYDROCHLORIDE(NEBIVOLOL HYDROCHLORIDE) [Concomitant]
  20. GLYCERYL TRINITRATE [Concomitant]
  21. OXAZEPAM [Concomitant]
  22. PANTOPRAZOLE SODIUM [Concomitant]
  23. PRAVASTATIN SODIUM [Concomitant]
  24. PROMETHAZINE HCL [Concomitant]
  25. RAMIPRIL [Concomitant]
  26. SPIRONOLACTONE [Concomitant]
  27. TORSEMIDE [Concomitant]

REACTIONS (1)
  - THROMBOCYTOPENIA [None]
